FAERS Safety Report 15348718 (Version 3)
Quarter: 2020Q1

REPORT INFORMATION
  Report Type: Report from Study
  Country: DE (occurrence: DE)
  Receive Date: 20180904
  Receipt Date: 20200117
  Transmission Date: 20200409
  Serious: Yes (Hospitalization)
  Sender: FDA-Public Use
  Company Number: DE-JNJFOC-20180820611

PATIENT
  Age: 7 Decade
  Sex: Male
  Weight: 85 kg

DRUGS (5)
  1. RENACOR [Concomitant]
     Indication: HYPERTENSION
     Route: 065
     Dates: start: 200409
  2. ECURAL [Concomitant]
     Active Substance: MOMETASONE
     Indication: PSORIASIS
     Route: 061
     Dates: start: 20160229
  3. TREMFYA [Suspect]
     Active Substance: GUSELKUMAB
     Indication: PSORIASIS
     Route: 065
  4. ECURAL [Concomitant]
     Active Substance: MOMETASONE
     Indication: PSORIATIC ARTHROPATHY
  5. ASPIRIN. [Concomitant]
     Active Substance: ASPIRIN
     Indication: HYPERTENSION
     Route: 065
     Dates: start: 200409

REACTIONS (2)
  - Cervical radiculopathy [Recovered/Resolved]
  - Intervertebral disc protrusion [Recovered/Resolved]

NARRATIVE: CASE EVENT DATE: 20180816
